FAERS Safety Report 6870717-8 (Version None)
Quarter: 2010Q3

REPORT INFORMATION
  Report Type: 
  Country: None (occurrence: None)
  Receive Date: 20100723
  Receipt Date: 20100721
  Transmission Date: 20110219
  Serious: Yes (Death, Hospitalization, Other)
  Sender: FDA-Public Use
  Company Number: US-ASTRAZENECA-2006UW18068

PATIENT
  Age: 35 Year
  Sex: Female

DRUGS (20)
  1. SEROQUEL [Suspect]
     Indication: SCHIZOPHRENIA
     Route: 048
     Dates: start: 20000918, end: 20000921
  2. SEROQUEL [Suspect]
     Indication: INTERMITTENT EXPLOSIVE DISORDER
     Route: 048
     Dates: start: 20000918, end: 20000921
  3. SEROQUEL [Suspect]
     Indication: AGITATION
     Route: 048
     Dates: start: 20000918, end: 20000921
  4. SEROQUEL [Suspect]
     Route: 048
     Dates: start: 20040901
  5. SEROQUEL [Suspect]
     Route: 048
     Dates: start: 20040901
  6. SEROQUEL [Suspect]
     Route: 048
     Dates: start: 20040901
  7. RISPERDAL [Suspect]
     Indication: SCHIZOPHRENIA
     Dosage: 2 MG,  3 MG
     Route: 065
     Dates: start: 20000921, end: 20040630
  8. RISPERDAL [Suspect]
     Indication: INTERMITTENT EXPLOSIVE DISORDER
     Dosage: 2 MG,  3 MG
     Route: 065
     Dates: start: 20000921, end: 20040630
  9. RISPERDAL [Suspect]
     Indication: AGITATION
     Dosage: 2 MG,  3 MG
     Route: 065
     Dates: start: 20000921, end: 20040630
  10. RISPERDAL [Suspect]
     Dosage: 1 MG TO 3 MG
     Route: 065
     Dates: start: 20001001, end: 20040401
  11. RISPERDAL [Suspect]
     Dosage: 1 MG TO 3 MG
     Route: 065
     Dates: start: 20001001, end: 20040401
  12. RISPERDAL [Suspect]
     Dosage: 1 MG TO 3 MG
     Route: 065
     Dates: start: 20001001, end: 20040401
  13. RISPERDAL [Suspect]
     Route: 065
     Dates: end: 20040901
  14. RISPERDAL [Suspect]
     Route: 065
     Dates: end: 20040901
  15. RISPERDAL [Suspect]
     Route: 065
     Dates: end: 20040901
  16. CLOZARIL [Concomitant]
     Dates: start: 20000101, end: 20040101
  17. HALDOL [Concomitant]
     Dates: start: 19940101
  18. ZOLOFT [Concomitant]
     Dates: start: 20040101
  19. XANAX [Concomitant]
     Dates: start: 20040101
  20. PAXIL [Concomitant]
     Dates: start: 20010101

REACTIONS (21)
  - ACUTE RESPIRATORY FAILURE [None]
  - ADVERSE DRUG REACTION [None]
  - AGGRESSION [None]
  - CHILLS [None]
  - DIABETES MELLITUS [None]
  - DIABETIC COMA [None]
  - DIABETIC KETOACIDOSIS [None]
  - DYSPNOEA [None]
  - GYNAECOMASTIA [None]
  - HORMONE LEVEL ABNORMAL [None]
  - INSOMNIA [None]
  - NEUROLEPTIC MALIGNANT SYNDROME [None]
  - NIGHTMARE [None]
  - OVARIAN DISORDER [None]
  - PNEUMONIA [None]
  - PNEUMONIA STAPHYLOCOCCAL [None]
  - RENAL FAILURE [None]
  - RENAL FAILURE CHRONIC [None]
  - RESTLESSNESS [None]
  - SEPTIC SHOCK [None]
  - UTERINE DISORDER [None]
